FAERS Safety Report 4596916-6 (Version None)
Quarter: 2005Q1

REPORT INFORMATION
  Report Type: 
  Country: None (occurrence: None)
  Receive Date: 20050228
  Receipt Date: 20041229
  Transmission Date: 20050727
  Serious: Yes (Hospitalization, Other)
  Sender: FDA-Public Use
  Company Number: 2004101425

PATIENT
  Age: 76 Year
  Sex: Male

DRUGS (7)
  1. BEXTRA [Suspect]
     Indication: ARTHRALGIA
     Dosage: 10 MG (10 MG, 1 IN 1 D), ORAL
     Route: 048
     Dates: start: 20040501, end: 20041001
  2. BEXTRA [Suspect]
     Indication: BACK PAIN
     Dosage: 10 MG (10 MG, 1 IN 1 D), ORAL
     Route: 048
     Dates: start: 20040501, end: 20041001
  3. PANTOPRAZOLE (PANTOPRAZOLE) [Concomitant]
  4. HYDROCHLOROTHIAZIDE [Concomitant]
  5. FOSINOPRIL SODIUM [Concomitant]
  6. CARVEDILOL [Concomitant]
  7. WARFARIN SODIUM [Concomitant]

REACTIONS (15)
  - ABDOMINAL PAIN UPPER [None]
  - ASTHMA [None]
  - ATRIAL FIBRILLATION [None]
  - COUGH [None]
  - DIARRHOEA [None]
  - DIZZINESS [None]
  - DYSPEPSIA [None]
  - HEADACHE [None]
  - HYPOTENSION [None]
  - LARYNGEAL DISORDER [None]
  - PROTHROMBIN TIME SHORTENED [None]
  - STOMACH DISCOMFORT [None]
  - UPPER RESPIRATORY TRACT INFECTION [None]
  - WEIGHT DECREASED [None]
  - WHEEZING [None]
